FAERS Safety Report 20921886 (Version 1)
Quarter: 2022Q2

REPORT INFORMATION
  Report Type: Spontaneous
  Country: AU (occurrence: AU)
  Receive Date: 20220607
  Receipt Date: 20220607
  Transmission Date: 20220721
  Serious: Yes (Other)
  Sender: FDA-Public Use
  Company Number: AU-BEH-2022146056

PATIENT
  Sex: Male

DRUGS (1)
  1. PRIVIGEN [Suspect]
     Active Substance: HUMAN IMMUNOGLOBULIN G
     Dosage: UNK
     Route: 065

REACTIONS (5)
  - Malaise [Unknown]
  - Condition aggravated [Unknown]
  - Therapy interrupted [Unknown]
  - Suspected product contamination [Unknown]
  - No adverse event [Unknown]
